FAERS Safety Report 19436474 (Version 1)
Quarter: 2021Q2

REPORT INFORMATION
  Report Type: Report from Study
  Country: FR (occurrence: FR)
  Receive Date: 20210618
  Receipt Date: 20210618
  Transmission Date: 20210717
  Serious: Yes (Hospitalization)
  Sender: FDA-Public Use
  Company Number: FR-ROCHE-2849022

PATIENT
  Age: 70 Year
  Sex: Female
  Weight: 76 kg

DRUGS (3)
  1. BEVACIZUMAB. [Suspect]
     Active Substance: BEVACIZUMAB
     Indication: OVARIAN CANCER RECURRENT
     Route: 042
     Dates: start: 20210528
  2. BLINDED ATEZOLIZUMAB [Suspect]
     Active Substance: ATEZOLIZUMAB
     Indication: OVARIAN CANCER RECURRENT
     Dosage: DATE OF LAST DOSE: 09/MAY/2021
     Route: 042
     Dates: start: 20210428
  3. ELIQUIS [Concomitant]
     Active Substance: APIXABAN
     Dosage: ANTICOAGULANT
     Route: 048
     Dates: start: 201812

REACTIONS (1)
  - Omphalorrhexis [Not Recovered/Not Resolved]

NARRATIVE: CASE EVENT DATE: 20210609
